FAERS Safety Report 5468553-2 (Version None)
Quarter: 2007Q3

REPORT INFORMATION
  Report Type: 
  Country: None (occurrence: None)
  Receive Date: 20070820
  Receipt Date: 20070620
  Transmission Date: 20080115
  Serious: No
  Sender: FDA-Public Use
  Company Number: WAES 0706USA04032

PATIENT
  Age: 52 Year
  Sex: Female

DRUGS (4)
  1. JANUVIA [Suspect]
     Indication: DIABETES MELLITUS
     Dosage: 100 MG/DAILY/PO
     Route: 048
     Dates: start: 20070620
  2. NULEV [Concomitant]
  3. PROVERA [Concomitant]
  4. OMEPRAZOLE [Concomitant]

REACTIONS (2)
  - ABDOMINAL PAIN UPPER [None]
  - OESOPHAGEAL DISCOMFORT [None]
